FAERS Safety Report 4973748-8 (Version None)
Quarter: 2006Q2

REPORT INFORMATION
  Report Type: 
  Country: None (occurrence: None)
  Receive Date: 20060414
  Receipt Date: 20050412
  Transmission Date: 20061013
  Serious: Yes (Hospitalization, Other)
  Sender: FDA-Public Use
  Company Number: US-MERCK-0504USA02144

PATIENT
  Age: 74 Year
  Sex: Male
  Weight: 109 kg

DRUGS (1)
  1. VIOXX [Suspect]
     Indication: OSTEOARTHRITIS
     Route: 048
     Dates: start: 20040310, end: 20040704

REACTIONS (12)
  - ATRIAL FIBRILLATION [None]
  - CARDIOMYOPATHY [None]
  - CEREBROVASCULAR ACCIDENT [None]
  - DEEP VEIN THROMBOSIS [None]
  - DIZZINESS [None]
  - ESSENTIAL HYPERTENSION [None]
  - FALL [None]
  - FATIGUE [None]
  - PARKINSON'S DISEASE [None]
  - PULMONARY EMBOLISM [None]
  - SCAN BRAIN [None]
  - THROMBOSIS [None]
